FAERS Safety Report 8518121-0 (Version None)
Quarter: 2012Q3

REPORT INFORMATION
  Report Type: 
  Country: None (occurrence: None)
  Receive Date: 20120718
  Receipt Date: 20120716
  Transmission Date: 20120928
  Serious: No
  Sender: FDA-Public Use
  Company Number: US-B.I. PHARMACEUTICALS,INC./RIDGEFIELD-2012-BP-15814BP

PATIENT
  Sex: Male

DRUGS (1)
  1. PRADAXA [Suspect]
     Dates: start: 20120701

REACTIONS (6)
  - NAUSEA [None]
  - DIARRHOEA [None]
  - HEADACHE [None]
  - COUGH [None]
  - EPISTAXIS [None]
  - DYSPEPSIA [None]
